FAERS Safety Report 19849322 (Version 1)
Quarter: 2021Q3

REPORT INFORMATION
  Report Type: Spontaneous
  Country: US (occurrence: US)
  Receive Date: 20210917
  Receipt Date: 20210917
  Transmission Date: 20211014
  Serious: No
  Sender: FDA-Public Use
  Company Number: US-SUNOVION-2021SUN003291

PATIENT
  Sex: Female

DRUGS (1)
  1. LATUDA [Suspect]
     Active Substance: LURASIDONE HYDROCHLORIDE
     Dosage: 80 MG
     Route: 048

REACTIONS (6)
  - Bradykinesia [Unknown]
  - Product administration error [Unknown]
  - Psychomotor hyperactivity [Unknown]
  - Hyperhidrosis [Unknown]
  - Tremor [Unknown]
  - Dyskinesia [Unknown]
